FAERS Safety Report 11277157 (Version 1)
Quarter: 2015Q3

REPORT INFORMATION
  Report Type: Report from Study
  Country: FR (occurrence: FR)
  Receive Date: 20150716
  Receipt Date: 20150716
  Transmission Date: 20151125
  Serious: Yes (Hospitalization)
  Sender: FDA-Public Use
  Company Number: FR-GLAXOSMITHKLINE-FR2015GSK101745

PATIENT
  Age: 7 Decade
  Sex: Male

DRUGS (7)
  1. COVERSYL [Concomitant]
     Active Substance: PERINDOPRIL
  2. FLUDEX (INDAPAMIDE) [Concomitant]
  3. TENORMIN [Concomitant]
     Active Substance: ATENOLOL
  4. TAHOR [Concomitant]
     Active Substance: ATORVASTATIN CALCIUM
  5. OMEGA-3-ACID ETHYL ESTERS. [Suspect]
     Active Substance: OMEGA-3-ACID ETHYL ESTERS
     Indication: ISCHAEMIC HEART DISEASE PROPHYLAXIS
     Dosage: UNK
     Dates: start: 20061001, end: 20110118
  6. PLAVIX [Concomitant]
     Active Substance: CLOPIDOGREL BISULFATE
  7. KARDEGIC [Concomitant]
     Active Substance: ASPIRIN LYSINE

REACTIONS (1)
  - Adverse event [Unknown]

NARRATIVE: CASE EVENT DATE: 20090325
